FAERS Safety Report 10746482 (Version 3)
Quarter: 2015Q3

REPORT INFORMATION
  Report Type: Report from Study
  Country: US (occurrence: US)
  Receive Date: 20150128
  Receipt Date: 20150820
  Transmission Date: 20151125
  Serious: Yes (Other)
  Sender: FDA-Public Use
  Company Number: US-SA-2013SA132897

PATIENT
  Age: 37 Year
  Sex: Female

DRUGS (4)
  1. REBIF [Concomitant]
     Active Substance: INTERFERON BETA-1A
     Indication: MULTIPLE SCLEROSIS
     Dates: start: 20100101, end: 20130101
  2. AUBAGIO [Suspect]
     Active Substance: TERIFLUNOMIDE
     Indication: RELAPSING-REMITTING MULTIPLE SCLEROSIS
     Route: 048
  3. AUBAGIO [Suspect]
     Active Substance: TERIFLUNOMIDE
     Indication: RELAPSING-REMITTING MULTIPLE SCLEROSIS
     Route: 048
  4. AUBAGIO [Suspect]
     Active Substance: TERIFLUNOMIDE
     Indication: RELAPSING-REMITTING MULTIPLE SCLEROSIS
     Route: 048
     Dates: start: 20121215

REACTIONS (17)
  - Nail growth abnormal [Not Recovered/Not Resolved]
  - Nail disorder [Unknown]
  - Nasopharyngitis [Unknown]
  - Pain [Not Recovered/Not Resolved]
  - Drug dose omission [Unknown]
  - Hair texture abnormal [Not Recovered/Not Resolved]
  - Ovarian cyst [Unknown]
  - Hot flush [Unknown]
  - Asthenia [Unknown]
  - Memory impairment [Not Recovered/Not Resolved]
  - Rhinorrhoea [Unknown]
  - Alopecia [Not Recovered/Not Resolved]
  - Hyperhidrosis [Unknown]
  - Oropharyngeal pain [Recovering/Resolving]
  - Nasal congestion [Unknown]
  - Hair growth abnormal [Not Recovered/Not Resolved]
  - Pyrexia [Unknown]

NARRATIVE: CASE EVENT DATE: 201403
